FAERS Safety Report 5843254-7 (Version None)
Quarter: 2008Q3

REPORT INFORMATION
  Report Type: 
  Country: None (occurrence: None)
  Receive Date: 20080813
  Receipt Date: 20080811
  Transmission Date: 20090109
  Serious: Yes (Death)
  Sender: FDA-Public Use
  Company Number: CN-ASTRAZENECA-2008AP06115

PATIENT
  Age: 60 Year
  Sex: Male

DRUGS (3)
  1. IRESSA [Suspect]
     Indication: LUNG NEOPLASM MALIGNANT
     Route: 048
     Dates: start: 20080401
  2. TAXOL [Concomitant]
     Indication: LUNG NEOPLASM MALIGNANT
     Dosage: 6 CYCLES
  3. TARCEVA [Concomitant]
     Indication: LUNG NEOPLASM MALIGNANT
     Dates: start: 20071101, end: 20080201

REACTIONS (2)
  - CHEST DISCOMFORT [None]
  - MYOCARDIAL INFARCTION [None]
